FAERS Safety Report 4602508-2 (Version None)
Quarter: 2005Q1

REPORT INFORMATION
  Report Type: 
  Country: None (occurrence: None)
  Receive Date: 20050307
  Receipt Date: 20050221
  Transmission Date: 20050727
  Serious: Yes (Disabling)
  Sender: FDA-Public Use
  Company Number: 2005035698

PATIENT
  Age: 68 Year
  Sex: Female
  Weight: 63.5036 kg

DRUGS (3)
  1. NARDIL [Suspect]
     Indication: DEPRESSION
     Dosage: 30 MG (15 MG, 2 IN 1 D); UNKNOWN
  2. LEVOTHYROXINE [Concomitant]
  3. ALL OTHER NON-THERAPEUTIC PRODUCTS [Concomitant]

REACTIONS (1)
  - DEAFNESS [None]
